FAERS Safety Report 24920589 (Version 1)
Quarter: 2025Q1

REPORT INFORMATION
  Report Type: Report from Study
  Country: US (occurrence: US)
  Receive Date: 20250204
  Receipt Date: 20250204
  Transmission Date: 20250408
  Serious: No
  Sender: EXELIXIS
  Company Number: US-EXELIXIS-CABO-24074293

PATIENT
  Sex: Male

DRUGS (2)
  1. CABOMETYX [Suspect]
     Active Substance: CABOZANTINIB S-MALATE
     Indication: Metastases to bone
     Dosage: 60 MG, QD
     Route: 048
     Dates: start: 202402
  2. INLYTA [Concomitant]
     Active Substance: AXITINIB

REACTIONS (9)
  - Hypoacusis [Unknown]
  - Taste disorder [Unknown]
  - Skin ulcer [Unknown]
  - Dehydration [Unknown]
  - Diarrhoea [Unknown]
  - Stomatitis [Unknown]
  - Dry mouth [Unknown]
  - Skin exfoliation [Unknown]
  - Off label use [Unknown]
